FAERS Safety Report 14841476 (Version 1)
Quarter: 2018Q2

REPORT INFORMATION
  Report Type: Spontaneous
  Country: US (occurrence: US)
  Receive Date: 20180418
  Receipt Date: 20180418
  Transmission Date: 20180711
  Serious: No
  Sender: FDA-Public Use
  Company Number: None

PATIENT

DRUGS (1)
  1. CANNABIS OIL [Suspect]
     Active Substance: CANNABIS SATIVA SEED OIL

REACTIONS (5)
  - Product use in unapproved indication [None]
  - Manufacturing process control procedure issue [None]
  - Asthma [None]
  - Product tampering [None]
  - Exposure to chemical pollution [None]

NARRATIVE: CASE EVENT DATE: 20180418
